FAERS Safety Report 19648096 (Version 1)
Quarter: 2021Q3

REPORT INFORMATION
  Report Type: Spontaneous
  Country: DE (occurrence: DE)
  Receive Date: 20210803
  Receipt Date: 20210803
  Transmission Date: 20211014
  Serious: Yes (Death, Hospitalization)
  Sender: FDA-Public Use
  Company Number: DE-JNJFOC-20210761140

PATIENT

DRUGS (1)
  1. IBUPROFEN. [Suspect]
     Active Substance: IBUPROFEN
     Indication: PRODUCT USED FOR UNKNOWN INDICATION
     Route: 065

REACTIONS (11)
  - Acute hepatic failure [Fatal]
  - Cerebral haemorrhage [Fatal]
  - Cardiogenic shock [Fatal]
  - Hepatic encephalopathy [Fatal]
  - Fibrosis [Fatal]
  - Drug-induced liver injury [Fatal]
  - Pulmonary embolism [Fatal]
  - Hepatic steatosis [Fatal]
  - Sepsis [Fatal]
  - Shock haemorrhagic [Fatal]
  - Brain oedema [Fatal]
